FAERS Safety Report 23854650 (Version 1)
Quarter: 2024Q2

REPORT INFORMATION
  Report Type: Spontaneous
  Country: US (occurrence: None)
  Receive Date: 20240514
  Receipt Date: 20240514
  Transmission Date: 20240716
  Serious: Yes (unspecified)
  Sender: FDA-Public Use
  Company Number: None

PATIENT
  Age: 58 Year
  Sex: Female
  Weight: 70.65 kg

DRUGS (2)
  1. ELIQUIS [Suspect]
     Active Substance: APIXABAN
     Indication: Ankle operation
     Dosage: 1 TABLET EVERY 12 HOURS ORAL?
     Route: 048
     Dates: start: 20231123
  2. Mag, calcium and zinc vitamins [Concomitant]

REACTIONS (6)
  - Gingival blister [None]
  - Gingival pain [None]
  - Gingival bleeding [None]
  - Hyperaesthesia teeth [None]
  - Bone loss [None]
  - Gingival recession [None]

NARRATIVE: CASE EVENT DATE: 20240415
